FAERS Safety Report 11273096 (Version 1)
Quarter: 2015Q3

REPORT INFORMATION
  Report Type: Spontaneous
  Country: US (occurrence: None)
  Receive Date: 20150714
  Receipt Date: 20150714
  Transmission Date: 20151125
  Serious: Yes (Life-Threatening, Hospitalization)
  Sender: FDA-Public Use
  Company Number: None

PATIENT
  Age: 67 Year
  Sex: Male

DRUGS (3)
  1. LYRICA [Concomitant]
     Active Substance: PREGABALIN
  2. DILAUDID [Suspect]
     Active Substance: HYDROMORPHONE HYDROCHLORIDE
  3. FENTANYL. [Concomitant]
     Active Substance: FENTANYL

REACTIONS (3)
  - Somnolence [None]
  - Miosis [None]
  - Respiratory rate decreased [None]

NARRATIVE: CASE EVENT DATE: 20150518
